FAERS Safety Report 13590510 (Version 2)
Quarter: 2017Q3

REPORT INFORMATION
  Report Type: Spontaneous
  Country: US (occurrence: US)
  Receive Date: 20170530
  Receipt Date: 20170807
  Transmission Date: 20171127
  Serious: Yes (Other)
  Sender: FDA-Public Use
  Company Number: US-GLAXOSMITHKLINE-US2017GSK078431

PATIENT
  Sex: Female

DRUGS (1)
  1. ADVAIR DISKUS [Suspect]
     Active Substance: FLUTICASONE PROPIONATE\SALMETEROL XINAFOATE
     Indication: LUNG DISORDER
     Dosage: UNK, 1D

REACTIONS (8)
  - Intentional product misuse [Unknown]
  - Dyspnoea exertional [Recovered/Resolved]
  - Pneumothorax [Recovered/Resolved]
  - Drug dose omission [Unknown]
  - Lung disorder [Recovered/Resolved]
  - Intentional underdose [Unknown]
  - Dyspnoea [Recovered/Resolved]
  - Ill-defined disorder [Unknown]

NARRATIVE: CASE EVENT DATE: 2002
